FAERS Safety Report 7972305-9 (Version None)
Quarter: 2011Q4

REPORT INFORMATION
  Report Type: 
  Country: None (occurrence: None)
  Receive Date: 20111213
  Receipt Date: 20111205
  Transmission Date: 20120403
  Serious: No
  Sender: FDA-Public Use
  Company Number: US-BIOGENIDEC-2011BI038011

PATIENT
  Age: 58 Year
  Sex: Female

DRUGS (1)
  1. TYSABRI [Suspect]
     Indication: MULTIPLE SCLEROSIS
     Route: 042
     Dates: start: 20110711

REACTIONS (6)
  - HERPES ZOSTER [None]
  - BACK PAIN [None]
  - PYREXIA [None]
  - BLADDER DISORDER [None]
  - MUSCULOSKELETAL PAIN [None]
  - LUMBAR SPINAL STENOSIS [None]
